FAERS Safety Report 7076617-5 (Version None)
Quarter: 2010Q4

REPORT INFORMATION
  Report Type: 
  Country: None (occurrence: None)
  Receive Date: 20101029
  Receipt Date: 20101029
  Transmission Date: 20110411
  Serious: Yes (Other)
  Sender: FDA-Public Use
  Company Number: None

PATIENT
  Sex: Female
  Weight: 51.2565 kg

DRUGS (6)
  1. FORTEO [Suspect]
     Indication: OSTEOPOROTIC FRACTURE
     Dosage: FORTEO 70MCG DAILY SUBCUTANEOUS
     Route: 058
     Dates: start: 20100601, end: 20100901
  2. METHOTREXATE [Concomitant]
  3. FOLIC ACID [Concomitant]
  4. CALCIUM + VIT D [Concomitant]
  5. METAMUCIL-2 [Concomitant]
  6. ASPIRIN [Concomitant]

REACTIONS (8)
  - BLOOD CALCIUM INCREASED [None]
  - DRUG INEFFECTIVE [None]
  - FALL [None]
  - GAIT DISTURBANCE [None]
  - NERVOUS SYSTEM DISORDER [None]
  - PULMONARY CONGESTION [None]
  - THORACIC VERTEBRAL FRACTURE [None]
  - TREMOR [None]
